FAERS Safety Report 8835308 (Version 3)
Quarter: 2013Q2

REPORT INFORMATION
  Report Type: Report from Study
  Country: US (occurrence: US)
  Receive Date: 20121011
  Receipt Date: 20130524
  Transmission Date: 20140414
  Serious: Yes (Death, Hospitalization)
  Sender: FDA-Public Use
  Company Number: US-PFIZER INC-2012249269

PATIENT
  Age: 78 Year
  Sex: Male
  Weight: 85 kg

DRUGS (5)
  1. BLINDED CELECOXIB [Suspect]
     Indication: NON-SMALL CELL LUNG CANCER
     Dosage: 2X/DAY
     Route: 048
     Dates: start: 20120910, end: 20120910
  2. BLINDED PLACEBO [Suspect]
     Indication: NON-SMALL CELL LUNG CANCER
     Dosage: 2X/DAY
     Route: 048
     Dates: start: 20120910, end: 20120910
  3. CARBOPLATIN [Suspect]
     Indication: NON-SMALL CELL LUNG CANCER
     Dosage: 480 MG, 1X/DAY
     Route: 042
     Dates: start: 20120828, end: 20120828
  4. GEMCITABINE HYDROCHLORIDE [Suspect]
     Indication: NON-SMALL CELL LUNG CANCER
     Dosage: 1925 MG, 1X/DAY
     Route: 042
     Dates: start: 20120828, end: 20120828
  5. GEMCITABINE HYDROCHLORIDE [Suspect]
     Dosage: 1925 MG, 1X/DAY
     Route: 042
     Dates: start: 20120904, end: 20120904

REACTIONS (6)
  - Neutrophil count decreased [Not Recovered/Not Resolved]
  - Platelet count decreased [Not Recovered/Not Resolved]
  - White blood cell count decreased [Not Recovered/Not Resolved]
  - Oesophageal infection [Not Recovered/Not Resolved]
  - Non-small cell lung cancer metastatic [Fatal]
  - Cerebrovascular accident [Not Recovered/Not Resolved]
